FAERS Safety Report 12223429 (Version 1)
Quarter: 2016Q1

REPORT INFORMATION
  Report Type: Spontaneous
  Country: US (occurrence: US)
  Receive Date: 20160330
  Receipt Date: 20160330
  Transmission Date: 20160526
  Serious: No
  Sender: FDA-Public Use
  Company Number: US-EISAI MEDICAL RESEARCH-EC-2016-015461

PATIENT
  Sex: Female

DRUGS (1)
  1. RUFINAMIDE [Suspect]
     Active Substance: RUFINAMIDE
     Indication: EPILEPSY
     Dosage: UNKNOWN

REACTIONS (1)
  - Drug ineffective [Unknown]
